FAERS Safety Report 6024198-7 (Version None)
Quarter: 2008Q4

REPORT INFORMATION
  Report Type: 
  Country: None (occurrence: None)
  Receive Date: 20081230
  Receipt Date: 20081218
  Transmission Date: 20090506
  Serious: Yes (Other)
  Sender: FDA-Public Use
  Company Number: US-PFIZER INC-2008099326

PATIENT
  Sex: Male

DRUGS (3)
  1. VIAGRA [Suspect]
     Indication: ERECTILE DYSFUNCTION
     Route: 048
     Dates: start: 20060101
  2. CELEBREX [Interacting]
     Indication: ARTHRITIS
     Route: 048
     Dates: start: 20081101
  3. ALLEGRA [Concomitant]
     Indication: HYPERSENSITIVITY

REACTIONS (6)
  - DRUG INEFFECTIVE [None]
  - DRUG INTERACTION [None]
  - JOINT EFFUSION [None]
  - MENISCUS LESION [None]
  - OSTEOARTHRITIS [None]
  - TENDONITIS [None]
